FAERS Safety Report 12548639 (Version 1)
Quarter: 2016Q3

REPORT INFORMATION
  Report Type: Spontaneous
  Country: US (occurrence: None)
  Receive Date: 20160711
  Receipt Date: 20160711
  Transmission Date: 20161109
  Serious: No
  Sender: FDA-Public Use
  Company Number: None

PATIENT

DRUGS (1)
  1. POLYETHYLENE GLYCOL 3350 POWDER KREMERIS URBAN PHARMACEUTICAL [Suspect]
     Active Substance: POLYETHYLENE GLYCOL 3350

REACTIONS (2)
  - Underdose [None]
  - Product label issue [None]

NARRATIVE: CASE EVENT DATE: 20160708
